FAERS Safety Report 13694161 (Version 2)
Quarter: 2019Q1

REPORT INFORMATION
  Report Type: Spontaneous
  Country: IT (occurrence: IT)
  Receive Date: 20170627
  Receipt Date: 20190115
  Transmission Date: 20190417
  Serious: Yes (Hospitalization, Other)
  Sender: FDA-Public Use
  Company Number: PHHY2017IT091458

PATIENT
  Age: 53 Year
  Sex: Male

DRUGS (4)
  1. ACETYLSALICYLIC ACID [Interacting]
     Active Substance: ASPIRIN
     Indication: PRODUCT USED FOR UNKNOWN INDICATION
     Dosage: ({=100 MG)
     Route: 065
  2. NAPROXEN. [Interacting]
     Active Substance: NAPROXEN
     Indication: PRODUCT USED FOR UNKNOWN INDICATION
     Dosage: ({= 220 MG)
     Route: 065
  3. PREDNISONE. [Suspect]
     Active Substance: PREDNISONE
     Indication: PRODUCT USED FOR UNKNOWN INDICATION
     Route: 065
  4. NIMESULIDE [Suspect]
     Active Substance: NIMESULIDE
     Indication: PRODUCT USED FOR UNKNOWN INDICATION
     Route: 065

REACTIONS (7)
  - Labelled drug-drug interaction medication error [Recovering/Resolving]
  - Gastric ulcer haemorrhage [Recovering/Resolving]
  - Erosive duodenitis [Recovering/Resolving]
  - Product prescribing error [Unknown]
  - Gastritis [Recovering/Resolving]
  - Gastrointestinal mucosa hyperaemia [Recovering/Resolving]
  - Product use issue [Recovering/Resolving]
